FAERS Safety Report 16197343 (Version 1)
Quarter: 2019Q2

REPORT INFORMATION
  Report Type: Spontaneous
  Country: US (occurrence: US)
  Receive Date: 20190415
  Receipt Date: 20190415
  Transmission Date: 20190711
  Serious: No
  Sender: FDA-Public Use
  Company Number: US-NEOPHARMA INC-000076

PATIENT

DRUGS (2)
  1. AUGMENTIN [Suspect]
     Active Substance: AMOXICILLIN\CLAVULANATE POTASSIUM
     Indication: PRODUCT USED FOR UNKNOWN INDICATION
  2. VIAGRA [Suspect]
     Active Substance: SILDENAFIL CITRATE
     Indication: PRODUCT USED FOR UNKNOWN INDICATION
     Dosage: 1 HOUR BEFORE EXPECTED SEXUAL ACTIVITY. DO NOT TAKE MORE THAN 1/4 TH TABLET IN A 72 HOUR PERIOD.
     Route: 048
     Dates: start: 20181221

REACTIONS (2)
  - Hypersensitivity [Unknown]
  - Food allergy [Unknown]

NARRATIVE: CASE EVENT DATE: 20181221
